FAERS Safety Report 13050178 (Version 1)
Quarter: 2016Q4

REPORT INFORMATION
  Report Type: Spontaneous
  Country: GB (occurrence: GB)
  Receive Date: 20161221
  Receipt Date: 20161221
  Transmission Date: 20170207
  Serious: Yes (Hospitalization)
  Sender: FDA-Public Use
  Company Number: GB-TEVA-720637ACC

PATIENT
  Age: 65 Year

DRUGS (2)
  1. TAMSULOSIN [Concomitant]
     Active Substance: TAMSULOSIN
     Dosage: 400 MICROGRAM DAILY;
  2. LANSOPRAZOLE. [Suspect]
     Active Substance: LANSOPRAZOLE
     Dosage: 30 MILLIGRAM DAILY;

REACTIONS (1)
  - Hyponatraemia [Recovered/Resolved]
